FAERS Safety Report 8184580-9 (Version None)
Quarter: 2012Q1

REPORT INFORMATION
  Report Type: 
  Country: None (occurrence: None)
  Receive Date: 20120305
  Receipt Date: 20120221
  Transmission Date: 20120608
  Serious: Yes (Hospitalization, Other)
  Sender: FDA-Public Use
  Company Number: US-MERCK-0403USA00626

PATIENT
  Age: 67 Year
  Sex: Female
  Weight: 68 kg

DRUGS (20)
  1. FOSAMAX [Suspect]
     Route: 048
     Dates: start: 19980101
  2. FOSAMAX [Suspect]
     Route: 048
  3. ESTROGENS (UNSPECIFIED) [Concomitant]
     Route: 065
     Dates: start: 19870101, end: 20021001
  4. VITAMIN D (UNSPECIFIED) [Concomitant]
     Route: 065
  5. FOSAMAX [Suspect]
     Route: 048
     Dates: start: 19990301, end: 20000101
  6. FOSAMAX [Suspect]
     Route: 048
     Dates: start: 19980101
  7. FOSAMAX [Suspect]
     Route: 048
     Dates: start: 19990301, end: 20000101
  8. CALCIUM (UNSPECIFIED) [Concomitant]
     Route: 065
     Dates: start: 20030101
  9. DYAZIDE [Concomitant]
     Indication: HYPERTENSION
     Route: 065
  10. PRAVACHOL [Concomitant]
     Indication: HYPERCHOLESTEROLAEMIA
     Route: 065
  11. FOSAMAX [Suspect]
     Indication: OSTEOPOROSIS
     Route: 048
     Dates: start: 20000101, end: 20040301
  12. FOSAMAX [Suspect]
     Route: 048
  13. FOSAMAX [Suspect]
     Indication: OSTEOPENIA
     Route: 048
     Dates: start: 20000101, end: 20040301
  14. ASPIRIN [Concomitant]
     Route: 065
  15. LEXAPRO [Concomitant]
     Route: 065
  16. SYNTHROID [Concomitant]
     Route: 065
  17. ACETAMINOPHEN AND HYDROCODONE BITARTRATE [Concomitant]
     Route: 065
  18. DYAZIDE [Concomitant]
     Indication: OEDEMA
     Route: 065
  19. AMBIEN [Concomitant]
     Route: 065
  20. BEXTRA [Concomitant]
     Indication: OSTEOARTHRITIS
     Route: 065

REACTIONS (13)
  - ANAEMIA POSTOPERATIVE [None]
  - DEPRESSION [None]
  - FEMUR FRACTURE [None]
  - METABOLIC DISORDER [None]
  - CONSTIPATION [None]
  - BREAST CANCER [None]
  - HAEMORRHOIDS [None]
  - FRACTURE DELAYED UNION [None]
  - CARPAL TUNNEL SYNDROME [None]
  - HYPOPARATHYROIDISM [None]
  - GASTROOESOPHAGEAL REFLUX DISEASE [None]
  - LOW TURNOVER OSTEOPATHY [None]
  - TINNITUS [None]
